FAERS Safety Report 5959128-7 (Version None)
Quarter: 2008Q4

REPORT INFORMATION
  Report Type: 
  Country: None (occurrence: None)
  Receive Date: 20081120
  Receipt Date: 20080131
  Transmission Date: 20090506
  Serious: Yes (Other)
  Sender: FDA-Public Use
  Company Number: A0706654A

PATIENT
  Age: 37 Year
  Sex: Female

DRUGS (2)
  1. WELLBUTRIN SR [Suspect]
     Route: 048
     Dates: start: 20070101
  2. MEDICATION FOR HIGH BLOOD PRESSURE [Concomitant]

REACTIONS (2)
  - BLOOD PRESSURE INCREASED [None]
  - COMPLEX PARTIAL SEIZURES [None]
